FAERS Safety Report 5263163-4 (Version None)
Quarter: 2007Q1

REPORT INFORMATION
  Report Type: 
  Country: None (occurrence: None)
  Receive Date: 20070312
  Receipt Date: 20070228
  Transmission Date: 20070707
  Serious: Yes (Other)
  Sender: FDA-Public Use
  Company Number: US-PFIZER INC-2007016732

PATIENT
  Sex: Female

DRUGS (5)
  1. SUTENT [Suspect]
     Indication: METASTASIS
     Route: 048
     Dates: start: 20060101, end: 20070225
  2. GLEEVEC [Suspect]
  3. PRILOSEC [Concomitant]
  4. NORVASC [Concomitant]
  5. DRUG, UNSPECIFIED [Concomitant]
     Indication: GLAUCOMA

REACTIONS (8)
  - ANAEMIA [None]
  - BLOOD LACTATE DEHYDROGENASE INCREASED [None]
  - GASTRIC DISORDER [None]
  - HAEMOLYSIS [None]
  - HYPERTENSION [None]
  - HYPOTHYROIDISM [None]
  - LABORATORY TEST ABNORMAL [None]
  - RENAL FAILURE ACUTE [None]
